FAERS Safety Report 7131307-5 (Version None)
Quarter: 2010Q4

REPORT INFORMATION
  Report Type: 
  Country: None (occurrence: None)
  Receive Date: 20101201
  Receipt Date: 20101129
  Transmission Date: 20110411
  Serious: Yes (Other)
  Sender: FDA-Public Use
  Company Number: GXKR2010DE13361

PATIENT
  Age: 75 Year
  Sex: Male

DRUGS (1)
  1. LEVOCOMP (NGX) [Suspect]
     Route: 048

REACTIONS (2)
  - DYSPNOEA [None]
  - PLEURAL EFFUSION [None]
